FAERS Safety Report 8543863-0 (Version None)
Quarter: 2012Q3

REPORT INFORMATION
  Report Type: 
  Country: None (occurrence: None)
  Receive Date: 20120727
  Receipt Date: 20120724
  Transmission Date: 20120928
  Serious: Yes (Death, Other)
  Sender: FDA-Public Use
  Company Number: PHHY2012CA032295

PATIENT
  Sex: Male

DRUGS (22)
  1. CLOZARIL [Suspect]
     Dosage: 300 MG, QHS
  2. DIMENHYDRINATE [Concomitant]
     Dosage: 50 MG, TID
  3. HALOPERIDOL [Concomitant]
     Indication: AGGRESSION
     Dosage: 1 MG, QD
  4. MORPHINE SULFATE [Concomitant]
     Indication: PAIN
     Dosage: 3 MG, UNK
     Route: 058
  5. CLOZARIL [Suspect]
     Dosage: 50 MG, QHS
  6. HALOPERIDOL [Concomitant]
     Dosage: 0.5 MG, BID
  7. DIVALPROEX SODIUM [Concomitant]
     Dosage: 1 DF, 250 MG BID
  8. ACETAMINOPHEN [Concomitant]
     Indication: BODY TEMPERATURE INCREASED
     Dosage: 2 DF Q4 HOUR IF TEMPERATURE
  9. BENZTROPINE MESYLATE [Concomitant]
     Dosage: 1 DF, BID
  10. IPRATROPIUM BROMIDE [Concomitant]
     Dosage: 40 UG, QID
  11. LORAZEPAM [Concomitant]
     Indication: ANXIETY
     Dosage: 1 MG, QD
  12. MORPHINE SULFATE [Concomitant]
     Dosage: 2 MG, QID
     Route: 058
  13. LORAZEPAM [Concomitant]
     Dosage: 1 MG, TID
  14. METFORMIN HYDROCHLORIDE [Concomitant]
     Dosage: 1 DF, TID
  15. CLOZARIL [Suspect]
     Indication: SCHIZOPHRENIA
     Dosage: 350 MG, HS
     Route: 048
     Dates: start: 20071126
  16. ATROPINE [Concomitant]
     Dosage: 2 DRP, TID
  17. METHOTRIMEPRAZINE [Concomitant]
     Dosage: 1 DF, QHS
  18. PERINDOPRIL ERBUMINE [Concomitant]
     Dosage: 4 MG, QD
  19. ALBUTEROL SULATE [Concomitant]
     Dosage: 200 UG, QID
  20. ACETAMINOPHEN [Concomitant]
     Dosage: 650 MG, Q4 HOUR IF TEMPERATURE
  21. HALOPERIDOL [Concomitant]
     Dosage: 2 MG, BID
  22. TERAZOSIN HYDROCHLORIDE [Concomitant]
     Dosage: 5 MG, QD

REACTIONS (2)
  - SCHIZOPHRENIA [None]
  - PANCREATIC CARCINOMA METASTATIC [None]
